FAERS Safety Report 6272224-2 (Version None)
Quarter: 2009Q3

REPORT INFORMATION
  Report Type: 
  Country: None (occurrence: None)
  Receive Date: 20090717
  Receipt Date: 20090707
  Transmission Date: 20100115
  Serious: Yes (Other)
  Sender: FDA-Public Use
  Company Number: DE-ELI_LILLY_AND_COMPANY-DE200907001328

PATIENT
  Age: 79 Year
  Sex: Female

DRUGS (5)
  1. FORTEO [Suspect]
     Indication: OSTEOPOROSIS
     Dosage: 20 UG, DAILY (1/D)
     Route: 058
     Dates: start: 20081201
  2. RAMIPRIL [Concomitant]
     Indication: BLOOD PRESSURE
     Dosage: 10 MG, 2/D
     Route: 065
  3. CALCIMAGON /00108001/ [Concomitant]
     Dosage: UNK, UNKNOWN
     Route: 065
  4. ASPIRIN [Concomitant]
     Dosage: 100, UNKNOWN
     Route: 065
  5. SIMVAHEXAL [Concomitant]
     Indication: LIPIDS INCREASED
     Dosage: 20 MG, UNKNOWN
     Route: 065

REACTIONS (1)
  - CERVICAL VERTEBRAL FRACTURE [None]
